FAERS Safety Report 7703562-1 (Version None)
Quarter: 2011Q3

REPORT INFORMATION
  Report Type: 
  Country: None (occurrence: None)
  Receive Date: 20110823
  Receipt Date: 20110811
  Transmission Date: 20111222
  Serious: No
  Sender: FDA-Public Use
  Company Number: PHHY2009DE68654

PATIENT
  Sex: Female
  Weight: 82 kg

DRUGS (7)
  1. SANDOSTATIN LAR [Suspect]
     Indication: ACROMEGALY
     Dosage: 30 MG, UNK
     Route: 030
     Dates: start: 20090201
  2. LEVOTHYROXINE SODIUM [Concomitant]
  3. INSULIN [Concomitant]
  4. METOPROLOL TARTRATE [Concomitant]
     Dosage: 95 MG, TWICE DAILY
  5. SOMAVERT [Concomitant]
     Dosage: 1 DF, WEEKLY
  6. CONJUGATED ESTROGENS [Concomitant]
  7. HYDROCORTISONE [Concomitant]

REACTIONS (1)
  - DRUG INEFFECTIVE [None]
